FAERS Safety Report 11091134 (Version 1)
Quarter: 2015Q2

REPORT INFORMATION
  Report Type: Spontaneous
  Country: US (occurrence: US)
  Receive Date: 20150505
  Receipt Date: 20150505
  Transmission Date: 20150821
  Serious: Yes (Other)
  Sender: FDA-Public Use
  Company Number: US-WATSON-2015-08981

PATIENT
  Age: 30 Year
  Sex: Female

DRUGS (1)
  1. SULFASALAZINE (WATSON LABORATORIES) [Suspect]
     Active Substance: SULFASALAZINE
     Indication: PRODUCT USED FOR UNKNOWN INDICATION
     Dosage: UNK, UNKNOWN
     Route: 065

REACTIONS (1)
  - Rheumatoid arthritis [Unknown]
